FAERS Safety Report 5348417-5 (Version None)
Quarter: 2007Q2

REPORT INFORMATION
  Report Type: 
  Country: None (occurrence: None)
  Receive Date: 20070605
  Receipt Date: 20070524
  Transmission Date: 20071010
  Serious: Yes (Disabling)
  Sender: FDA-Public Use
  Company Number: GXKR2007DK04623

PATIENT
  Age: 81 Year
  Sex: Male

DRUGS (1)
  1. SIMVASTATIN [Suspect]
     Dosage: 40 MG, ORAL
     Route: 048
     Dates: start: 20030515, end: 20051122

REACTIONS (3)
  - DEMYELINATION [None]
  - PARALYSIS [None]
  - PERONEAL NERVE INJURY [None]
